FAERS Safety Report 8796118 (Version 4)
Quarter: 2012Q4

REPORT INFORMATION
  Report Type: Report from Study
  Country: JP (occurrence: JP)
  Receive Date: 20120919
  Receipt Date: 20121108
  Transmission Date: 20130627
  Serious: Yes (Hospitalization, Other)
  Sender: FDA-Public Use
  Company Number: JP-SANOFI-AVENTIS-2012SA064924

PATIENT
  Age: 74 Year
  Sex: Male

DRUGS (11)
  1. LANSOPRAZOLE [Suspect]
     Indication: GASTRIC ULCER
     Route: 048
     Dates: start: 20120618, end: 20120807
  2. ROXITHROMYCIN [Suspect]
     Indication: FOLLICULITIS
     Route: 048
     Dates: start: 20120808, end: 20120817
  3. GLIMEPIRIDE [Suspect]
     Indication: DIABETES MELLITUS
     Route: 048
     Dates: start: 20060614
  4. PIOGLITAZONE HYDROCHLORIDE [Suspect]
     Indication: DIABETES MELLITUS
     Route: 048
     Dates: start: 20061120
  5. ACARBOSE [Suspect]
     Indication: DIABETES MELLITUS
     Route: 048
     Dates: start: 20071120
  6. METFORMIN HYDROCHLORIDE [Suspect]
     Indication: DIABETES MELLITUS
     Route: 048
     Dates: start: 20110721
  7. TAMSULOSIN HYDROCHLORIDE [Suspect]
     Indication: PROSTATIC HYPERPLASIA
     Route: 048
     Dates: start: 20040629
  8. HACHIMIJIO-GAN [Suspect]
     Indication: PROSTATIC HYPERPLASIA
     Route: 048
     Dates: start: 20040629
  9. KETOPROFEN [Suspect]
     Indication: POLYARTHRITIS
     Route: 062
     Dates: start: 20090303
  10. TELMISARTAN [Suspect]
     Indication: HYPERTENSION
     Route: 048
     Dates: start: 20120802
  11. NADIFLOXACIN [Suspect]
     Indication: FOLLICULITIS
     Route: 062
     Dates: start: 20120808, end: 20120817

REACTIONS (2)
  - Interstitial lung disease [Recovering/Resolving]
  - Pulmonary hypertension [Recovering/Resolving]
